FAERS Safety Report 12270956 (Version 1)
Quarter: 2016Q2

REPORT INFORMATION
  Report Type: Spontaneous
  Country: PL (occurrence: PL)
  Receive Date: 20160415
  Receipt Date: 20160415
  Transmission Date: 20160815
  Serious: Yes (Other)
  Sender: FDA-Public Use
  Company Number: PL-ROCHE-1741183

PATIENT
  Age: 49 Year
  Sex: Female

DRUGS (9)
  1. ALVESCO [Suspect]
     Active Substance: CICLESONIDE
     Route: 065
  2. ALVESCO [Suspect]
     Active Substance: CICLESONIDE
     Dosage: ALVESCO DOSE WAS PERIODICALLY REDUCED TO 320 MICROGRAM BID.
     Route: 055
  3. METYPRED [Concomitant]
     Active Substance: METHYLPREDNISOLONE
     Dosage: STARTING FROM 32 MG DAILY WITH GRADUAL DOSE REDUCTION OVER THREE WEEKS
     Route: 065
  4. FORADIL [Suspect]
     Active Substance: FORMOTEROL FUMARATE
     Indication: ASTHMA
     Route: 055
  5. ALVESCO [Suspect]
     Active Substance: CICLESONIDE
     Indication: ASTHMA
     Route: 055
  6. XOLAIR [Suspect]
     Active Substance: OMALIZUMAB
     Indication: ASTHMA
     Route: 058
     Dates: start: 201401
  7. PROMONTA [Suspect]
     Active Substance: MONTELUKAST SODIUM
     Indication: ASTHMA
     Route: 065
  8. ESTROFEM (POLAND) [Concomitant]
  9. ENCORTON [Concomitant]
     Active Substance: PREDNISONE
     Route: 065

REACTIONS (15)
  - Dyspnoea [Recovering/Resolving]
  - Hydrocephalus [Unknown]
  - Wheezing [Recovering/Resolving]
  - Ovarian enlargement [Unknown]
  - Middle insomnia [Recovering/Resolving]
  - Erythema migrans [Unknown]
  - Menorrhagia [Unknown]
  - Migraine [Unknown]
  - Arthropod bite [Unknown]
  - Normochromic normocytic anaemia [Recovered/Resolved]
  - Rhinorrhoea [Unknown]
  - Product use issue [Unknown]
  - Uterine leiomyoma [Unknown]
  - Lacrimation increased [Unknown]
  - Headache [Not Recovered/Not Resolved]

NARRATIVE: CASE EVENT DATE: 201406
